FAERS Safety Report 17798870 (Version 1)
Quarter: 2020Q2

REPORT INFORMATION
  Report Type: Spontaneous
  Country: None (occurrence: US)
  Receive Date: 20200518
  Receipt Date: 20200518
  Transmission Date: 20200714
  Serious: No
  Sender: FDA-Public Use
  Company Number: US-AKRON, INC.-2083894

PATIENT
  Age: 74 Year
  Sex: Female
  Weight: 39.15 kg

DRUGS (1)
  1. LEVOFLOXACIN INJECT [Suspect]
     Active Substance: LEVOFLOXACIN

REACTIONS (4)
  - Pain [Unknown]
  - Anxiety [Unknown]
  - Headache [Unknown]
  - Nervousness [Unknown]
